FAERS Safety Report 17292771 (Version 1)
Quarter: 2020Q1

REPORT INFORMATION
  Report Type: Spontaneous
  Country: PT (occurrence: PT)
  Receive Date: 20200121
  Receipt Date: 20200121
  Transmission Date: 20200409
  Serious: Yes (Other)
  Sender: FDA-Public Use
  Company Number: PT-BAYER-2020-004203

PATIENT
  Age: 70 Year
  Sex: Male
  Weight: 85 kg

DRUGS (1)
  1. ULTRAVIST [Suspect]
     Active Substance: IOPROMIDE
     Indication: COMPUTERISED TOMOGRAM
     Dosage: 85 ML A 2ML/SEG (ONCE)
     Route: 042
     Dates: start: 20191213, end: 20191213

REACTIONS (3)
  - Lip swelling [Recovered/Resolved]
  - Feeling hot [Recovered/Resolved]
  - Urticaria papular [Recovered/Resolved]

NARRATIVE: CASE EVENT DATE: 20191213
